FAERS Safety Report 6425722-2 (Version None)
Quarter: 2009Q4

REPORT INFORMATION
  Report Type: 
  Country: None (occurrence: None)
  Receive Date: 20091103
  Receipt Date: 20091026
  Transmission Date: 20100525
  Serious: Yes (Hospitalization)
  Sender: FDA-Public Use
  Company Number: PHHO2009KR13231

PATIENT
  Sex: Male
  Weight: 58.1 kg

DRUGS (2)
  1. RAD 666 RAD+TAB [Suspect]
     Indication: GASTRIC CANCER
     Dosage: 10 MG DAILY
     Route: 048
     Dates: start: 20090410, end: 20091004
  2. RAD 666 RAD+TAB [Suspect]
     Dosage: 10 MG DAILY
     Dates: start: 20091020

REACTIONS (3)
  - ABDOMINAL PAIN [None]
  - ASCITES [None]
  - ILEUS [None]
